FAERS Safety Report 14511797 (Version 3)
Quarter: 2018Q2

REPORT INFORMATION
  Report Type: Report from Study
  Country: CN (occurrence: CN)
  Receive Date: 20180209
  Receipt Date: 20180607
  Transmission Date: 20180711
  Serious: Yes (Hospitalization)
  Sender: FDA-Public Use
  Company Number: CN-ASTELLAS-2018US006729

PATIENT
  Age: 31 Year
  Sex: Female

DRUGS (48)
  1. METHYLPREDNISOLONE SODIUM SUCCINATE. [Suspect]
     Active Substance: METHYLPREDNISOLONE SODIUM SUCCINATE
     Indication: LUPUS NEPHRITIS
     Route: 042
     Dates: start: 20180111, end: 20180112
  2. FUROSEMIDE. [Concomitant]
     Active Substance: FUROSEMIDE
     Route: 042
     Dates: start: 20180124, end: 20180126
  3. ENOXAPARIN SODIUM. [Concomitant]
     Active Substance: ENOXAPARIN SODIUM
     Indication: PROPHYLAXIS
     Route: 055
     Dates: start: 20180110, end: 20180112
  4. ERYTHROPOIETIN HUMAN [Concomitant]
     Active Substance: ERYTHROPOIETIN
     Dosage: 1W IU, TOTAL DOSE
     Route: 055
     Dates: start: 20180117, end: 20180117
  5. POTASSIUM CHLORIDE. [Concomitant]
     Active Substance: POTASSIUM CHLORIDE
     Dosage: 3 G, THRICE DAILY
     Route: 048
     Dates: start: 20180130
  6. SODIUM BICARBONATE. [Concomitant]
     Active Substance: SODIUM BICARBONATE
     Dosage: 6 DF, THRICE DAILY
     Route: 065
     Dates: start: 20180112, end: 20180113
  7. THYMOPENTIN [Concomitant]
     Active Substance: THYMOPENTIN
     Route: 030
     Dates: start: 20180125, end: 20180129
  8. CALCITRIOL. [Concomitant]
     Active Substance: CALCITRIOL
     Indication: PROPHYLAXIS
     Dosage: 0.25 ?G, ONCE DAILY
     Route: 048
     Dates: start: 20180112
  9. SODIUM BICARBONATE. [Concomitant]
     Active Substance: SODIUM BICARBONATE
     Indication: PROPHYLAXIS
     Dosage: 12.5 G/100 ML, TOTAL DOSE
     Route: 042
     Dates: start: 20180111, end: 20180111
  10. TACROLIMUS. [Suspect]
     Active Substance: TACROLIMUS
     Indication: LUPUS NEPHRITIS
     Route: 042
     Dates: start: 20180125, end: 20180127
  11. FUROSEMIDE. [Concomitant]
     Active Substance: FUROSEMIDE
     Route: 042
     Dates: start: 20180111, end: 20180111
  12. METOCLOPRAMIDE. [Concomitant]
     Active Substance: METOCLOPRAMIDE
     Indication: PROPHYLAXIS
     Route: 030
     Dates: start: 20180111, end: 20180115
  13. POLYSACCHARIDE-IRON COMPLEX [Concomitant]
     Route: 048
     Dates: start: 20180114
  14. IPRATROPIUM BROMIDE. [Concomitant]
     Active Substance: IPRATROPIUM BROMIDE
     Indication: COUGH
     Dosage: 5 ML, TWICE DAILY
     Route: 055
     Dates: start: 20180116, end: 20180117
  15. IPRATROPIUM BROMIDE. [Concomitant]
     Active Substance: IPRATROPIUM BROMIDE
     Dosage: 7.5 ML, THRICE DAILY
     Route: 055
     Dates: start: 20180118, end: 20180128
  16. BUDESONIDE. [Concomitant]
     Active Substance: BUDESONIDE
     Indication: COUGH
     Dosage: 2 MG DAILY DOSE, TWICE DAILY
     Route: 055
     Dates: start: 20180116, end: 20180116
  17. TACROLIMUS. [Suspect]
     Active Substance: TACROLIMUS
     Dosage: 2 MG, TWICE DAILY ( 2 MG IN THE MORNING AND 2 MG IN THE EVENING)
     Route: 048
     Dates: start: 20180128
  18. METHYLPREDNISOLONE SODIUM SUCCINATE. [Suspect]
     Active Substance: METHYLPREDNISOLONE SODIUM SUCCINATE
     Route: 042
     Dates: start: 20180125, end: 20180127
  19. FUROSEMIDE. [Concomitant]
     Active Substance: FUROSEMIDE
     Indication: POLYURIA
     Route: 042
     Dates: start: 20180110, end: 20180110
  20. FUROSEMIDE. [Concomitant]
     Active Substance: FUROSEMIDE
     Route: 042
     Dates: start: 20180128, end: 20180128
  21. GRANULOCYTE COLONY STIMULATING FACTOR [Concomitant]
     Active Substance: GRANULOCYTE COLONY-STIMULATING FACTOR NOS
     Indication: LEUKOCYTOSIS
     Route: 055
     Dates: start: 20180111, end: 20180113
  22. NITROGLYCERIN. [Concomitant]
     Active Substance: NITROGLYCERIN
     Indication: PAIN
     Route: 042
     Dates: start: 20180113, end: 20180113
  23. FUROSEMIDE. [Concomitant]
     Active Substance: FUROSEMIDE
     Route: 042
     Dates: start: 20180202, end: 20180203
  24. CALCIUM CARBONATE/VITAMIN D3 [Concomitant]
     Active Substance: CALCIUM CARBONATE\CHOLECALCIFEROL
     Indication: PROPHYLAXIS
     Route: 048
     Dates: start: 20180111, end: 20180124
  25. THYMOPENTIN [Concomitant]
     Active Substance: THYMOPENTIN
     Indication: PROPHYLAXIS
     Route: 030
     Dates: start: 20180116, end: 20180123
  26. FUROSEMIDE. [Concomitant]
     Active Substance: FUROSEMIDE
     Route: 042
     Dates: start: 20180122, end: 20180122
  27. BICYCLOL [Concomitant]
     Active Substance: BICYCLOL
     Indication: PROPHYLAXIS
     Route: 048
     Dates: start: 20180116, end: 20180116
  28. BICYCLOL [Concomitant]
     Active Substance: BICYCLOL
     Dosage: 75 MG DAILY DOSE, THRICE DAILY
     Route: 048
     Dates: start: 20180117, end: 20180129
  29. POTASSIUM CHLORIDE. [Concomitant]
     Active Substance: POTASSIUM CHLORIDE
     Indication: PROPHYLAXIS
     Route: 048
     Dates: start: 20180116, end: 20180116
  30. POTASSIUM CHLORIDE. [Concomitant]
     Active Substance: POTASSIUM CHLORIDE
     Dosage: 3 G, THRICE DAILY
     Route: 048
     Dates: start: 20180117
  31. CARBAZOCHROME SODIUM SULFONATE [Concomitant]
     Active Substance: CARBAZOCHROME SODIUM SULFONATE
     Indication: HAEMOSTASIS
     Route: 042
     Dates: start: 20180118, end: 20180123
  32. METHYLPREDNISOLONE SODIUM SUCCINATE. [Suspect]
     Active Substance: METHYLPREDNISOLONE SODIUM SUCCINATE
     Route: 042
     Dates: start: 20180113, end: 20180115
  33. FUROSEMIDE. [Concomitant]
     Active Substance: FUROSEMIDE
     Route: 042
     Dates: start: 20180204, end: 20180204
  34. CALCIUM CARBONATE/VITAMIN D3 [Concomitant]
     Active Substance: CALCIUM CARBONATE\CHOLECALCIFEROL
     Route: 048
     Dates: start: 20180125, end: 20180129
  35. ESOMEPRAZOLE MAGNESIUM. [Concomitant]
     Active Substance: ESOMEPRAZOLE MAGNESIUM
     Indication: PROPHYLAXIS
     Route: 048
     Dates: start: 20180111, end: 20180113
  36. POLYSACCHARIDE-IRON COMPLEX [Concomitant]
     Indication: ANAEMIA
     Route: 048
     Dates: start: 20180112, end: 20180112
  37. LIDOCAINE HYDROCHLORIDE. [Concomitant]
     Active Substance: LIDOCAINE HYDROCHLORIDE
     Indication: LOCAL ANAESTHESIA
     Dosage: 0.2 G, TOTAL DOSE
     Route: 050
     Dates: start: 20180118, end: 20180118
  38. SODIUM BICARBONATE. [Concomitant]
     Active Substance: SODIUM BICARBONATE
     Indication: PROPHYLAXIS
     Dosage: 3 G, THRICE DAILY
     Route: 048
     Dates: start: 20180112, end: 20180129
  39. PREDNISONE ACETATE [Suspect]
     Active Substance: PREDNISONE ACETATE
     Indication: LUPUS NEPHRITIS
     Route: 048
     Dates: start: 20180116, end: 20180125
  40. ERYTHROPOIETIN HUMAN [Concomitant]
     Active Substance: ERYTHROPOIETIN
     Indication: ANAEMIA
     Dosage: 1W IU, TOTAL DOSE
     Route: 055
     Dates: start: 20180111, end: 20180111
  41. CALCIUM CARBONATE/VITAMIN D3 [Concomitant]
     Active Substance: CALCIUM CARBONATE\CHOLECALCIFEROL
     Route: 048
     Dates: start: 20180130
  42. OMEPRAZOLE SODIUM [Concomitant]
     Active Substance: OMEPRAZOLE SODIUM
     Indication: PROPHYLAXIS
     Route: 042
     Dates: start: 20180112, end: 20180129
  43. BICYCLOL [Concomitant]
     Active Substance: BICYCLOL
     Dosage: 1 PILL, ONCE DAILY
     Route: 048
     Dates: start: 20180130
  44. ALPROSTADIL. [Concomitant]
     Active Substance: ALPROSTADIL
     Indication: PROPHYLAXIS
     Route: 042
     Dates: start: 20180112, end: 20180117
  45. SODIUM BICARBONATE. [Concomitant]
     Active Substance: SODIUM BICARBONATE
     Dosage: 12.5 G/100 ML, TOTAL DOSE
     Route: 042
     Dates: start: 20180114, end: 20180114
  46. PREDNISONE ACETATE [Suspect]
     Active Substance: PREDNISONE ACETATE
     Route: 048
     Dates: start: 20180128
  47. FUROSEMIDE. [Concomitant]
     Active Substance: FUROSEMIDE
     Route: 042
     Dates: start: 20180116, end: 20180116
  48. BUDESONIDE. [Concomitant]
     Active Substance: BUDESONIDE
     Dosage: 3 MG DAILY DOSE, THRICE DAILY
     Route: 055
     Dates: start: 20180118, end: 20180128

REACTIONS (1)
  - Oedema [Recovered/Resolved]

NARRATIVE: CASE EVENT DATE: 20180202
